FAERS Safety Report 6709734-7 (Version None)
Quarter: 2010Q2

REPORT INFORMATION
  Report Type: 
  Country: None (occurrence: None)
  Receive Date: 20100504
  Receipt Date: 20100426
  Transmission Date: 20101027
  Serious: Yes (Hospitalization)
  Sender: FDA-Public Use
  Company Number: US-JNJFOC-20100405185

PATIENT
  Sex: Male
  Weight: 99.79 kg

DRUGS (12)
  1. DURAGESIC-100 [Suspect]
     Indication: OSTEOARTHRITIS
     Route: 062
  2. DURAGESIC-100 [Suspect]
     Indication: PANCREATITIS
     Dosage: NDC NUMBER 50458-0094-05
     Route: 062
  3. ATTENTION DEFICIT DISORDER MEDICATION [Concomitant]
     Route: 048
  4. ACIPHEX [Concomitant]
     Indication: GASTRIC DISORDER
     Route: 048
  5. TOPAMAX [Concomitant]
     Indication: MIGRAINE
     Route: 048
  6. AMOXICILLIN [Concomitant]
     Indication: ACNE
     Route: 048
  7. ABILIFY [Concomitant]
     Indication: DEPRESSION
     Route: 048
  8. CYMBALTA [Concomitant]
     Indication: PSYCHIATRIC SYMPTOM
     Route: 048
  9. PAMELOR [Concomitant]
     Indication: DEPRESSION
     Route: 048
  10. ATIVAN [Concomitant]
     Indication: ANXIETY
     Route: 048
  11. VITAMINS AND MINERALS [Concomitant]
     Route: 048
  12. PANCREASE MT4 [Concomitant]
     Indication: PANCREATITIS
     Route: 048

REACTIONS (6)
  - ACNE [None]
  - DEPRESSION [None]
  - DRUG INEFFECTIVE [None]
  - PANCREATITIS [None]
  - WEIGHT DECREASED [None]
  - WRONG TECHNIQUE IN DRUG USAGE PROCESS [None]
